FAERS Safety Report 17548816 (Version 1)
Quarter: 2020Q1

REPORT INFORMATION
  Report Type: Spontaneous
  Country: US (occurrence: US)
  Receive Date: 20200317
  Receipt Date: 20200317
  Transmission Date: 20200409
  Serious: No
  Sender: FDA-Public Use
  Company Number: US-ALLERGAN-1917294US

PATIENT
  Sex: Female

DRUGS (2)
  1. NORCO [Suspect]
     Active Substance: ACETAMINOPHEN\HYDROCODONE BITARTRATE
     Indication: PAIN
     Dosage: UNK
     Route: 065
  2. PERCOCET                           /00446701/ [Concomitant]
     Active Substance: ACETAMINOPHEN\OXYCODONE HYDROCHLORIDE\OXYCODONE TEREPHTHALATE
     Indication: PAIN

REACTIONS (2)
  - Constipation [Unknown]
  - Drug ineffective [Unknown]
